FAERS Safety Report 20462658 (Version 3)
Quarter: 2022Q3

REPORT INFORMATION
  Report Type: Spontaneous
  Country: US (occurrence: US)
  Receive Date: 20220211
  Receipt Date: 20220718
  Transmission Date: 20221027
  Serious: Yes (Hospitalization, Other)
  Sender: FDA-Public Use
  Company Number: US-SA-SAC20220210000576

PATIENT
  Age: 85 Year
  Sex: Male

DRUGS (11)
  1. DUPIXENT [Suspect]
     Active Substance: DUPILUMAB
     Indication: Dermatitis atopic
     Dosage: 300 MG, QOW
     Dates: start: 20200323
  2. DUPIXENT [Suspect]
     Active Substance: DUPILUMAB
     Indication: Pemphigoid
     Dosage: 300 MG, QOW
     Route: 058
     Dates: start: 202111
  3. PREDNISONE [Concomitant]
     Active Substance: PREDNISONE
  4. TRAMADOL [Concomitant]
     Active Substance: TRAMADOL
  5. PRAVASTATIN [Concomitant]
     Active Substance: PRAVASTATIN
     Indication: Coronary artery disease
  6. NITROGLYCERIN [Concomitant]
     Active Substance: NITROGLYCERIN
  7. MAXIPIME [Concomitant]
     Active Substance: CEFEPIME HYDROCHLORIDE
  8. PROAIR HFA [Concomitant]
     Active Substance: ALBUTEROL SULFATE
  9. SYMBICORT [Concomitant]
     Active Substance: BUDESONIDE\FORMOTEROL FUMARATE DIHYDRATE
  10. MAXIPRIM [Concomitant]
  11. SPIRIVA [Concomitant]
     Active Substance: TIOTROPIUM BROMIDE MONOHYDRATE

REACTIONS (4)
  - Cerebral haemorrhage [Unknown]
  - Cerebral thrombosis [Unknown]
  - Thrombosis [Unknown]
  - Product use in unapproved indication [Unknown]

NARRATIVE: CASE EVENT DATE: 20210209
